FAERS Safety Report 8813491 (Version 1)
Quarter: 2012Q4

REPORT INFORMATION
  Report Type: 
  Country: US (occurrence: US)
  Receive Date: 20120927
  Receipt Date: 20120927
  Transmission Date: 20130627
  Serious: No
  Sender: FDA-Public Use
  Company Number: US-AMGEN-USASP2012049265

PATIENT
  Sex: Male

DRUGS (4)
  1. PROLIA [Suspect]
     Indication: PRODUCT USED FOR UNKNOWN INDICATION
     Dosage: UNK
  2. LUPRON [Concomitant]
  3. CALCIUM [Concomitant]
  4. VITAMIN D /00107901/ [Concomitant]

REACTIONS (2)
  - Skin exfoliation [Unknown]
  - Rash [Unknown]
